FAERS Safety Report 13915426 (Version 1)
Quarter: 2017Q3

REPORT INFORMATION
  Report Type: Spontaneous
  Country: US (occurrence: US)
  Receive Date: 20170829
  Receipt Date: 20170829
  Transmission Date: 20171127
  Serious: No
  Sender: FDA-Public Use
  Company Number: US-PFIZER INC-2017368430

PATIENT
  Age: 61 Year
  Sex: Female

DRUGS (1)
  1. METHOTREXATE SODIUM. [Suspect]
     Active Substance: METHOTREXATE SODIUM
     Dosage: UNK

REACTIONS (7)
  - Hand deformity [Unknown]
  - Osteopenia [Unknown]
  - Osteoarthritis [Unknown]
  - Peripheral swelling [Unknown]
  - Soft tissue swelling [Unknown]
  - Limb discomfort [Unknown]
  - Foot fracture [Unknown]
